FAERS Safety Report 4991284-X (Version None)
Quarter: 2006Q2

REPORT INFORMATION
  Report Type: 
  Country: None (occurrence: None)
  Receive Date: 20060428
  Receipt Date: 20060415
  Transmission Date: 20061013
  Serious: Yes (Hospitalization)
  Sender: FDA-Public Use
  Company Number: 2005BI015157

PATIENT
  Age: 58 Year
  Sex: Female

DRUGS (1)
  1. AVONEX [Suspect]
     Indication: MULTIPLE SCLEROSIS
     Dosage: 30 UG; QW; IM
     Route: 030
     Dates: start: 20040215, end: 20050724

REACTIONS (3)
  - ANAL ULCER [None]
  - DECUBITUS ULCER [None]
  - RECTAL ULCER [None]
